FAERS Safety Report 10983333 (Version 3)
Quarter: 2015Q2

REPORT INFORMATION
  Report Type: Spontaneous
  Country: US (occurrence: US)
  Receive Date: 20150403
  Receipt Date: 20150508
  Transmission Date: 20150821
  Serious: Yes (Other)
  Sender: FDA-Public Use
  Company Number: US-PFIZER INC-2015115724

PATIENT
  Age: 27 Year
  Sex: Male

DRUGS (1)
  1. FLUCONAZOLE. [Suspect]
     Active Substance: FLUCONAZOLE
     Indication: MYCOTIC ENDOPHTHALMITIS
     Dosage: UNK

REACTIONS (2)
  - Drug ineffective [Unknown]
  - Mycotic endophthalmitis [Unknown]
